FAERS Safety Report 11761951 (Version 1)
Quarter: 2015Q4

REPORT INFORMATION
  Report Type: Spontaneous
  Country: US (occurrence: US)
  Receive Date: 20151120
  Receipt Date: 20151120
  Transmission Date: 20160304
  Serious: No
  Sender: FDA-Public Use
  Company Number: US-ETHYPHARM USA CORP-EY-BP-US-2015-161

PATIENT

DRUGS (3)
  1. HEROIN [Concomitant]
     Active Substance: DIACETYLMORPHINE
  2. SUBUTEX [Suspect]
     Active Substance: BUPRENORPHINE HYDROCHLORIDE
  3. SUBUTEX [Suspect]
     Active Substance: BUPRENORPHINE HYDROCHLORIDE
     Dosage: 10 TO 18 MG DAILY
     Route: 065

REACTIONS (7)
  - Drug withdrawal syndrome [None]
  - Feeling cold [None]
  - Pain [None]
  - Paraesthesia [None]
  - Feeling abnormal [None]
  - Poor quality sleep [None]
  - Hyperhidrosis [None]
